FAERS Safety Report 13036257 (Version 4)
Quarter: 2017Q1

REPORT INFORMATION
  Report Type: Report from Study
  Country: US (occurrence: US)
  Receive Date: 20161216
  Receipt Date: 20170329
  Transmission Date: 20170428
  Serious: Yes (Hospitalization)
  Sender: FDA-Public Use
  Company Number: US-TARO-2016TAR01020

PATIENT
  Age: 59 Year
  Sex: Male
  Weight: 76.64 kg

DRUGS (3)
  1. TEGRETOL [Concomitant]
     Active Substance: CARBAMAZEPINE
  2. LISINOPRIL. [Concomitant]
     Active Substance: LISINOPRIL
  3. FINACEA [Suspect]
     Active Substance: AZELAIC ACID
     Indication: ROSACEA
     Dosage: 1 APPLICATION, 2X/DAY
     Route: 061
     Dates: start: 20161021

REACTIONS (7)
  - Upper limb fracture [Recovering/Resolving]
  - Clavicle fracture [Recovering/Resolving]
  - Scapula fracture [Recovering/Resolving]
  - Joint injury [Recovering/Resolving]
  - Joint dislocation [Recovering/Resolving]
  - Road traffic accident [Recovered/Resolved]
  - Rib fracture [Recovering/Resolving]

NARRATIVE: CASE EVENT DATE: 20161205
